FAERS Safety Report 11779033 (Version 1)
Quarter: 2015Q4

REPORT INFORMATION
  Report Type: Spontaneous
  Country: US (occurrence: US)
  Receive Date: 20151125
  Receipt Date: 20151125
  Transmission Date: 20160304
  Serious: Yes (Other)
  Sender: FDA-Public Use
  Company Number: US-TEVA-611175USA

PATIENT
  Age: 11 Year
  Sex: Male

DRUGS (2)
  1. FLONASE [Concomitant]
     Active Substance: FLUTICASONE PROPIONATE
  2. QVAR [Suspect]
     Active Substance: BECLOMETHASONE DIPROPIONATE
     Indication: ASTHMA
     Route: 065

REACTIONS (5)
  - Cough [Not Recovered/Not Resolved]
  - Weight loss poor [Not Recovered/Not Resolved]
  - Failure to thrive [Not Recovered/Not Resolved]
  - Breast enlargement [Unknown]
  - Weight increased [Not Recovered/Not Resolved]
